FAERS Safety Report 7891098-7 (Version None)
Quarter: 2011Q4

REPORT INFORMATION
  Report Type: 
  Country: None (occurrence: None)
  Receive Date: 20111103
  Receipt Date: 20110729
  Transmission Date: 20120403
  Serious: No
  Sender: FDA-Public Use
  Company Number: US-AMGEN-USASP2011038602

PATIENT
  Weight: 170 kg

DRUGS (12)
  1. LEVOTHYROXINE SODIUM [Concomitant]
     Dosage: 100 MUG, UNK
  2. ESTROVEN                           /02150801/ [Concomitant]
  3. ENBREL [Suspect]
     Indication: PRODUCT USED FOR UNKNOWN INDICATION
     Dosage: 50 MG, QWK
  4. PROZAC [Concomitant]
     Dosage: 20 MG, UNK
  5. NO DOZ [Concomitant]
     Dosage: 200 MG, UNK
  6. FOSAMAX [Concomitant]
     Dosage: 10 MG, UNK
  7. METHOTREXATE [Concomitant]
     Dosage: 2.5 MG, UNK
  8. IBUPROFEN [Concomitant]
     Dosage: 800 MG, UNK
  9. METHYLPREDNISOLONE [Concomitant]
     Dosage: 4 MG, UNK
  10. VITAMIN D [Concomitant]
     Dosage: 2000 IU, UNK
  11. CO-Q10-CHLORELLA [Concomitant]
     Dosage: UNK
  12. CALCIUM [Concomitant]
     Dosage: UNK

REACTIONS (2)
  - INJECTION SITE HAEMATOMA [None]
  - INJECTION SITE PAIN [None]
